FAERS Safety Report 9591059 (Version 2)
Quarter: 2013Q4

REPORT INFORMATION
  Report Type: Spontaneous
  Country: US (occurrence: US)
  Receive Date: 20131003
  Receipt Date: 20131003
  Transmission Date: 20140711
  Serious: No
  Sender: FDA-Public Use
  Company Number: US-AMGEN-USASP2012070643

PATIENT
  Age: 77 Year
  Sex: Male
  Weight: 117.46 kg

DRUGS (21)
  1. ENBREL [Suspect]
     Indication: PSORIASIS
     Dosage: 50 MG, BIWEEKLY
     Dates: start: 20071220
  2. HUMIRA [Concomitant]
     Dosage: UNK
  3. MULTAQ [Concomitant]
     Dosage: 400 MG, BID
  4. TORSEMIDE [Concomitant]
     Indication: OEDEMA PERIPHERAL
     Dosage: 20 MG, QD AS NEEDED
  5. POTASSIUM CHLORATE [Concomitant]
     Dosage: 8 MEQ, QD AS NEEDED
  6. THEOPHYLLINE [Concomitant]
     Indication: ASTHMA
     Dosage: 300 MG, BID
  7. STALEVO [Concomitant]
     Indication: TREMOR
     Dosage: 50 MG, QD
  8. ZOLOFT [Concomitant]
     Indication: DEPRESSION
     Dosage: 100 MG, QD
  9. MYSOLINE [Concomitant]
     Indication: TREMOR
     Dosage: 250 MG, BID
  10. MEDROL                             /00049601/ [Concomitant]
     Indication: CHRONIC OBSTRUCTIVE PULMONARY DISEASE
     Dosage: 4 MG, QD
  11. MORTIN [Concomitant]
     Indication: ARTHRITIS
     Dosage: 600 MG AS NEEDED
  12. ALBUTEROL                          /00139501/ [Concomitant]
     Indication: CHRONIC OBSTRUCTIVE PULMONARY DISEASE
     Dosage: 90 MCG 2 PUFFS 4 X DAY
  13. ADVAIR [Concomitant]
     Indication: CHRONIC OBSTRUCTIVE PULMONARY DISEASE
     Dosage: 500/50 MGC 1 PUFF 2 X DAY
  14. XYZAL [Concomitant]
     Dosage: 5 MCG QD AS NEEDED
  15. NASONEX [Concomitant]
     Dosage: 5 MCG AS NEEDED
  16. ASPIRIN [Concomitant]
     Dosage: 81 MG, QD
  17. WARFARIN [Concomitant]
     Dosage: 18 MG, QD
  18. VYTORIN [Concomitant]
     Indication: BLOOD CHOLESTEROL
     Dosage: 10/40 QD
  19. OXYGEN [Concomitant]
     Dosage: 2 LTR HR AT NIGHT ONLY
  20. CARVEDILOL [Concomitant]
     Dosage: 3.125 MG, BID
  21. SPIRIVA [Concomitant]
     Indication: CHRONIC OBSTRUCTIVE PULMONARY DISEASE
     Dosage: UNK UNK, QD

REACTIONS (1)
  - Psoriasis [Not Recovered/Not Resolved]
